FAERS Safety Report 16725942 (Version 1)
Quarter: 2019Q3

REPORT INFORMATION
  Report Type: Report from Study
  Country: US (occurrence: US)
  Receive Date: 20190821
  Receipt Date: 20190821
  Transmission Date: 20191005
  Serious: Yes (Hospitalization)
  Sender: FDA-Public Use
  Company Number: PHHO2019US008419

PATIENT
  Age: 13 Year
  Sex: Female
  Weight: 40.8 kg

DRUGS (5)
  1. FLUDARABINE [Suspect]
     Active Substance: FLUDARABINE PHOSPHATE
     Indication: CHEMOTHERAPY
     Dosage: 30 MG/M2, 4 DAYS
     Route: 065
     Dates: start: 20180910, end: 20180913
  2. KYMRIAH [Suspect]
     Active Substance: TISAGENLECLEUCEL
     Indication: ACUTE LYMPHOCYTIC LEUKAEMIA
     Dosage: 1.25E+05 CART 19 CELLS/KG (10%), ONCE
     Route: 042
     Dates: start: 20180918
  3. CYCLOPHOSPHAMIDE. [Suspect]
     Active Substance: CYCLOPHOSPHAMIDE
     Indication: CHEMOTHERAPY
     Dosage: 500 MG/M2, 2 DAYS
     Route: 065
     Dates: start: 20180910, end: 20180911
  4. IMMUNOGLOBULIN G HUMAN [Concomitant]
     Active Substance: HUMAN IMMUNOGLOBULIN G
     Indication: PRODUCT USED FOR UNKNOWN INDICATION
     Dosage: 17.5 G
     Dates: start: 20181017
  5. KYMRIAH [Suspect]
     Active Substance: TISAGENLECLEUCEL
     Dosage: 3.75E+06 CART19 CELLS/KG (30%), ONCE
     Route: 042
     Dates: start: 20180919

REACTIONS (2)
  - Cellulitis orbital [Not Recovered/Not Resolved]
  - Sinusitis [Not Recovered/Not Resolved]

NARRATIVE: CASE EVENT DATE: 20190725
